FAERS Safety Report 9129637 (Version 1)
Quarter: 2013Q1

REPORT INFORMATION
  Report Type: Spontaneous
  Country: US (occurrence: US)
  Receive Date: 20130125
  Receipt Date: 20130125
  Transmission Date: 20140127
  Serious: Yes (Other)
  Sender: FDA-Public Use
  Company Number: CHPA2013US001467

PATIENT
  Age: 84 Year
  Sex: Female

DRUGS (2)
  1. EXCEDRIN EXTRA STRENGTH [Suspect]
     Indication: SINUS DISORDER
     Dosage: 2 DF, QD
     Route: 048
  2. EXCEDRIN EXTRA STRENGTH [Suspect]
     Dosage: 4 DF, QD
     Route: 048

REACTIONS (3)
  - Drug dependence [Unknown]
  - Sinus headache [Unknown]
  - Incorrect drug administration duration [Unknown]
